FAERS Safety Report 23636404 (Version 1)
Quarter: 2024Q1

REPORT INFORMATION
  Report Type: Spontaneous
  Country: US (occurrence: None)
  Receive Date: 20240314
  Receipt Date: 20240314
  Transmission Date: 20240409
  Serious: No
  Sender: FDA-Public Use
  Company Number: None

PATIENT
  Age: 49 Year
  Sex: Female
  Weight: 58.05 kg

DRUGS (10)
  1. QULIPTA [Suspect]
     Active Substance: ATOGEPANT
     Indication: Migraine
     Dosage: OTHER QUANTITY : 1 TABLET(S);?FREQUENCY : AT BEDTIME;?
     Route: 048
     Dates: start: 20231018
  2. PROZAC [Concomitant]
     Active Substance: FLUOXETINE HYDROCHLORIDE
  3. NURTEC ODT [Concomitant]
     Active Substance: RIMEGEPANT SULFATE
  4. SKELAXIN [Concomitant]
     Active Substance: METAXALONE
  5. ALEVE [Concomitant]
     Active Substance: NAPROXEN SODIUM
  6. ZYRTEC [Concomitant]
     Active Substance: CETIRIZINE HYDROCHLORIDE
  7. VITAMINS [Concomitant]
     Active Substance: VITAMINS
  8. FISH OIL [Concomitant]
     Active Substance: FISH OIL
  9. BISACODYL [Concomitant]
     Active Substance: BISACODYL
  10. MELATONIN [Concomitant]
     Active Substance: MELATONIN

REACTIONS (2)
  - Constipation [None]
  - Colitis [None]

NARRATIVE: CASE EVENT DATE: 20240219
